FAERS Safety Report 15832510 (Version 5)
Quarter: 2020Q3

REPORT INFORMATION
  Report Type: Spontaneous
  Country: QA (occurrence: QA)
  Receive Date: 20190116
  Receipt Date: 20200807
  Transmission Date: 20201102
  Serious: Yes (Other)
  Sender: FDA-Public Use
  Company Number: PHHY2019QA002877

PATIENT
  Age: 32 Year
  Sex: Female

DRUGS (3)
  1. METHYLPREDNISOLONE. [Suspect]
     Active Substance: METHYLPREDNISOLONE
     Indication: MULTIPLE SCLEROSIS
     Dosage: 1
     Route: 065
  2. GILENYA [Suspect]
     Active Substance: FINGOLIMOD HYDROCHLORIDE
     Indication: MULTIPLE SCLEROSIS
     Dosage: UNK
     Route: 048
  3. RITUXIMAB. [Suspect]
     Active Substance: RITUXIMAB
     Indication: MULTIPLE SCLEROSIS
     Dosage: 1 G
     Route: 041

REACTIONS (9)
  - Multiple sclerosis [Recovering/Resolving]
  - Vision blurred [Recovering/Resolving]
  - Urinary incontinence [Recovering/Resolving]
  - Lhermitte^s sign [Recovering/Resolving]
  - Ataxia [Recovering/Resolving]
  - Maternal exposure during pregnancy [Unknown]
  - Hemiparesis [Recovering/Resolving]
  - Product use in unapproved indication [Unknown]
  - Drug ineffective [Unknown]
